FAERS Safety Report 17988413 (Version 1)
Quarter: 2020Q3

REPORT INFORMATION
  Report Type: Report from Study
  Country: US (occurrence: US)
  Receive Date: 20200707
  Receipt Date: 20200707
  Transmission Date: 20201103
  Serious: Yes (Hospitalization)
  Sender: FDA-Public Use
  Company Number: US-EISAI MEDICAL RESEARCH-EC-2020-076837

PATIENT
  Age: 68 Year
  Sex: Male

DRUGS (1)
  1. LENVIMA [Suspect]
     Active Substance: LENVATINIB
     Indication: HEPATIC CANCER
     Route: 048
     Dates: start: 20200529, end: 2020

REACTIONS (8)
  - Asthenia [Unknown]
  - Blood pressure fluctuation [Unknown]
  - Fatigue [Unknown]
  - Vomiting [Unknown]
  - Decreased appetite [Unknown]
  - Hypotension [Unknown]
  - Hepatic enzyme increased [Unknown]
  - Ageusia [Unknown]

NARRATIVE: CASE EVENT DATE: 202006
